FAERS Safety Report 7103257-1 (Version None)
Quarter: 2010Q4

REPORT INFORMATION
  Report Type: 
  Country: None (occurrence: None)
  Receive Date: 20101115
  Receipt Date: 20090731
  Transmission Date: 20110411
  Serious: No
  Sender: FDA-Public Use
  Company Number: US-KINGPHARMUSA00001-K200900915

PATIENT
  Sex: Female
  Weight: 63.492 kg

DRUGS (4)
  1. LEVOXYL [Suspect]
     Indication: HYPOTHYROIDISM
     Dosage: 25 MCG, QD
     Route: 048
     Dates: start: 20090701
  2. TUMS [Concomitant]
     Indication: DYSPEPSIA
     Dosage: UNK
     Route: 048
  3. CLARITIN [Concomitant]
     Indication: HYPERSENSITIVITY
     Dosage: UNK
  4. NASONEX [Concomitant]
     Indication: HYPERSENSITIVITY
     Dosage: UNK

REACTIONS (1)
  - DYSPEPSIA [None]
